FAERS Safety Report 9155898 (Version 1)
Quarter: 2013Q1

REPORT INFORMATION
  Report Type: Spontaneous
  Country: US (occurrence: US)
  Receive Date: 20130311
  Receipt Date: 20130311
  Transmission Date: 20140127
  Serious: Yes (Hospitalization, Other)
  Sender: FDA-Public Use
  Company Number: US-PFIZER INC-2013078366

PATIENT
  Sex: Female

DRUGS (10)
  1. LEVOXYL [Suspect]
     Indication: HYPOTHYROIDISM
     Dosage: 75 UG, 1X/DAY
     Route: 048
     Dates: start: 2012
  2. LEVOXYL [Suspect]
     Dosage: 125 UG, 1X/DAY
     Route: 048
  3. LEVOXYL [Suspect]
     Dosage: 137 UG, 1X/DAY
     Route: 048
  4. LEVOXYL [Suspect]
     Dosage: 150 UG, 1X/DAY
     Route: 048
  5. CORTISONE [Concomitant]
     Dosage: UNK
  6. NASONEX [Concomitant]
     Dosage: UNK
  7. NEXIUM [Concomitant]
     Dosage: UNK
  8. ESTRADIOL [Concomitant]
     Dosage: UNK
  9. VITAMIN D3 [Concomitant]
     Dosage: UNK
  10. DULERA [Concomitant]
     Dosage: UNK

REACTIONS (4)
  - Influenza [Recovered/Resolved]
  - Dehydration [Recovered/Resolved]
  - Renal impairment [Recovered/Resolved]
  - Thyroid function test abnormal [Unknown]
